FAERS Safety Report 8815448 (Version 1)
Quarter: 2012Q4

REPORT INFORMATION
  Report Type: 
  Country: GB (occurrence: GB)
  Receive Date: 20120928
  Receipt Date: 20120928
  Transmission Date: 20130627
  Serious: Yes (Hospitalization)
  Sender: FDA-Public Use
  Company Number: GB-GLAXOSMITHKLINE-B0832140A

PATIENT
  Age: 72 Year
  Sex: Male

DRUGS (1)
  1. ARZERRA [Suspect]
     Indication: CHRONIC LYMPHOCYTIC LEUKAEMIA
     Route: 042
     Dates: start: 2012

REACTIONS (3)
  - Extrasystoles [Recovered/Resolved]
  - Heart rate irregular [Recovered/Resolved]
  - Heart rate decreased [Recovered/Resolved]
